FAERS Safety Report 15729335 (Version 1)
Quarter: 2018Q4

REPORT INFORMATION
  Report Type: Spontaneous
  Country: RU (occurrence: RU)
  Receive Date: 20181217
  Receipt Date: 20181217
  Transmission Date: 20190205
  Serious: Yes (Other)
  Sender: FDA-Public Use
  Company Number: RU-ELI_LILLY_AND_COMPANY-RU201812005914

PATIENT
  Age: 44 Year
  Sex: Female

DRUGS (1)
  1. ERBITUX [Suspect]
     Active Substance: CETUXIMAB
     Indication: PRODUCT USED FOR UNKNOWN INDICATION
     Dosage: 100 MG/M2, UNKNOWN
     Route: 065

REACTIONS (3)
  - Off label use [Unknown]
  - Metastases to skin [Unknown]
  - Tumour rupture [Unknown]

NARRATIVE: CASE EVENT DATE: 201810
